FAERS Safety Report 11991941 (Version 1)
Quarter: 2016Q1

REPORT INFORMATION
  Report Type: Spontaneous
  Country: US (occurrence: US)
  Receive Date: 20160203
  Receipt Date: 20160203
  Transmission Date: 20160526
  Serious: No
  Sender: FDA-Public Use
  Company Number: US-JNJFOC-20151217607

PATIENT
  Age: 76 Year
  Sex: Female
  Weight: 84.37 kg

DRUGS (1)
  1. MOTRIN IB [Suspect]
     Active Substance: IBUPROFEN
     Indication: ANALGESIC THERAPY
     Dosage: 1 CAPLET ONCE
     Route: 048
     Dates: start: 20151217

REACTIONS (2)
  - Wrong technique in product usage process [Unknown]
  - Product packaging issue [Unknown]
